FAERS Safety Report 16750219 (Version 3)
Quarter: 2019Q3

REPORT INFORMATION
  Report Type: Spontaneous
  Country: US (occurrence: US)
  Receive Date: 20190828
  Receipt Date: 20190909
  Transmission Date: 20191005
  Serious: Yes (Other)
  Sender: FDA-Public Use
  Company Number: US-PFIZER INC-2019363411

PATIENT
  Age: 52 Year
  Sex: Female

DRUGS (1)
  1. RELPAX [Suspect]
     Active Substance: ELETRIPTAN HYDROBROMIDE
     Indication: MIGRAINE
     Dosage: 40 MG, AS NEEDED (USUALLY SEVERAL TIMES WEEKLY)
     Route: 048

REACTIONS (15)
  - Lower respiratory tract infection [Unknown]
  - Cough [Not Recovered/Not Resolved]
  - Fibromyalgia [Unknown]
  - Swelling [Not Recovered/Not Resolved]
  - Immune system disorder [Unknown]
  - Infection [Unknown]
  - Joint swelling [Not Recovered/Not Resolved]
  - Nausea [Unknown]
  - Feeling abnormal [Unknown]
  - Diarrhoea [Unknown]
  - Renal disorder [Unknown]
  - Dyspnoea [Unknown]
  - Recalled product administered [Unknown]
  - Abdominal pain upper [Unknown]
  - Breast cancer [Unknown]

NARRATIVE: CASE EVENT DATE: 201907
